FAERS Safety Report 16148798 (Version 3)
Quarter: 2019Q3

REPORT INFORMATION
  Report Type: Report from Study
  Country: None (occurrence: NL)
  Receive Date: 20190402
  Receipt Date: 20190705
  Transmission Date: 20191004
  Serious: Yes (Other)
  Sender: FDA-Public Use
  Company Number: NL-ABBVIE-19S-114-2725013-00

PATIENT
  Age: 72 Year
  Sex: Female
  Weight: 74.7 kg

DRUGS (1)
  1. DUODOPA [Suspect]
     Active Substance: CARBIDOPA\LEVODOPA
     Indication: PARKINSON^S DISEASE
     Dosage: MD6.5 ML CD: 2.3 ML ED:1.0 ML 16 HOUR ADMINISTRATION
     Route: 050
     Dates: start: 20150615

REACTIONS (11)
  - Dementia [Not Recovered/Not Resolved]
  - Hallucination [Recovered/Resolved]
  - Fall [Recovered/Resolved]
  - Constipation [Not Recovered/Not Resolved]
  - Weight increased [Unknown]
  - Confusional state [Not Recovered/Not Resolved]
  - Stoma site infection [Unknown]
  - Hip fracture [Recovering/Resolving]
  - Cognitive disorder [Not Recovered/Not Resolved]
  - Knee arthroplasty [Unknown]
  - Dyskinesia [Recovering/Resolving]

NARRATIVE: CASE EVENT DATE: 20190301
